FAERS Safety Report 6025107-7 (Version None)
Quarter: 2008Q4

REPORT INFORMATION
  Report Type: 
  Country: None (occurrence: None)
  Receive Date: 20081231
  Receipt Date: 20081222
  Transmission Date: 20090506
  Serious: Yes (Other)
  Sender: FDA-Public Use
  Company Number: BR-PFIZER INC-2008160736

PATIENT

DRUGS (4)
  1. FRONTAL [Suspect]
     Indication: PANIC DISORDER
     Dosage: 0.5 MG, 3X/DAY
     Route: 048
     Dates: start: 20020101
  2. FRONTAL [Suspect]
     Indication: FEAR
  3. FRONTAL [Suspect]
     Indication: PHOBIA
  4. PAROXETINE [Concomitant]
     Dosage: UNK

REACTIONS (8)
  - DRUG DEPENDENCE [None]
  - FEAR [None]
  - FEELING ABNORMAL [None]
  - HALLUCINATION, VISUAL [None]
  - PANIC REACTION [None]
  - PHOBIA [None]
  - SOMNOLENCE [None]
  - TREMOR [None]
